FAERS Safety Report 15283833 (Version 2)
Quarter: 2018Q4

REPORT INFORMATION
  Report Type: Spontaneous
  Country: US (occurrence: US)
  Receive Date: 20180816
  Receipt Date: 20181203
  Transmission Date: 20190204
  Serious: Yes (Hospitalization, Other)
  Sender: FDA-Public Use
  Company Number: US-INCYTE CORPORATION-2018IN008055

PATIENT

DRUGS (3)
  1. JAKAFI [Suspect]
     Active Substance: RUXOLITINIB
     Dosage: 5 MG, BID
     Route: 048
     Dates: start: 20151203
  2. JAKAFI [Suspect]
     Active Substance: RUXOLITINIB
     Indication: POLYCYTHAEMIA VERA
     Dosage: 5 MG, BID
     Route: 048
     Dates: start: 20151203
  3. JAKAFI [Suspect]
     Active Substance: RUXOLITINIB
     Dosage: UNK
     Route: 048
     Dates: start: 20171002, end: 20180915

REACTIONS (7)
  - Red blood cell count decreased [Unknown]
  - Cerebrovascular accident [Unknown]
  - Pneumonia [Recovered/Resolved]
  - Anaemia [Unknown]
  - Pulmonary sepsis [Recovered/Resolved]
  - Haemoglobin decreased [Unknown]
  - Infection [Unknown]

NARRATIVE: CASE EVENT DATE: 20180824
